FAERS Safety Report 20898319 (Version 3)
Quarter: 2023Q1

REPORT INFORMATION
  Report Type: Spontaneous
  Country: US (occurrence: US)
  Receive Date: 20220531
  Receipt Date: 20230212
  Transmission Date: 20230417
  Serious: No
  Sender: FDA-Public Use
  Company Number: US-LUPIN PHARMACEUTICALS INC.-2022-07805

PATIENT
  Sex: Female

DRUGS (6)
  1. ALBUTEROL SULFATE [Suspect]
     Active Substance: ALBUTEROL SULFATE
     Indication: Hypersensitivity
     Dosage: UNK, PRN, INHALE 2 PUFFS Q 4 TO 6 H PRN
     Dates: start: 20220419
  2. ALBUTEROL SULFATE [Suspect]
     Active Substance: ALBUTEROL SULFATE
     Indication: Asthma
     Dosage: UNK, PRN, INHALE 2 PUFFS Q 4 TO 6 H PRN
  3. ALBUTEROL SULFATE [Suspect]
     Active Substance: ALBUTEROL SULFATE
     Dosage: UNK, PRN, INHALE 2 PUFFS Q 4 TO 6 H PRN
  4. ALBUTEROL SULFATE [Suspect]
     Active Substance: ALBUTEROL SULFATE
     Dosage: UNK, PRN, INHALE 2 PUFFS Q 4 TO 6 H PRN
     Dates: start: 20220419
  5. ALBUTEROL SULFATE [Suspect]
     Active Substance: ALBUTEROL SULFATE
     Dosage: UNK, PRN, INHALE 2 PUFFS Q 4 TO 6 H PRN
     Dates: start: 20220419
  6. ALBUTEROL SULFATE [Suspect]
     Active Substance: ALBUTEROL SULFATE
     Dosage: UNK, PRN, INHALE 2 PUFFS Q 4 TO 6 H PRN
     Dates: start: 20220419

REACTIONS (6)
  - Device ineffective [Unknown]
  - Product preparation error [Unknown]
  - Device issue [Unknown]
  - Incorrect dose administered by device [Unknown]
  - Device delivery system issue [Unknown]
  - Device deposit issue [Unknown]
